FAERS Safety Report 6807262-1 (Version None)
Quarter: 2010Q2

REPORT INFORMATION
  Report Type: 
  Country: None (occurrence: None)
  Receive Date: 20100629
  Receipt Date: 20080811
  Transmission Date: 20101027
  Serious: No
  Sender: FDA-Public Use
  Company Number: US-PFIZER INC-2008062423

PATIENT
  Sex: Male
  Weight: 84.1 kg

DRUGS (3)
  1. TIKOSYN [Suspect]
     Indication: ATRIAL FIBRILLATION
     Dates: start: 20080301, end: 20080701
  2. BETA BLOCKING AGENTS [Suspect]
  3. WARFARIN [Concomitant]

REACTIONS (1)
  - CARDIAC DISORDER [None]
